FAERS Safety Report 4317350-X (Version None)
Quarter: 2004Q1

REPORT INFORMATION
  Report Type: 
  Country: None (occurrence: None)
  Receive Date: 20040312
  Receipt Date: 20040216
  Transmission Date: 20041129
  Serious: Yes (Death, Hospitalization)
  Sender: FDA-Public Use
  Company Number: 2004EU000351

PATIENT
  Age: 40 Year
  Sex: Male

DRUGS (2)
  1. PROGRAF [Suspect]
     Indication: LIVER TRANSPLANT
  2. CORTICOSTEROIDS [Concomitant]

REACTIONS (6)
  - ANAEMIA [None]
  - KAPOSI'S SARCOMA [None]
  - LUNG INFECTION [None]
  - MULTI-ORGAN FAILURE [None]
  - THROMBOCYTOPENIA [None]
  - VIRAL INFECTION [None]
